FAERS Safety Report 13712996 (Version 11)
Quarter: 2020Q3

REPORT INFORMATION
  Report Type: Report from Study
  Country: CA (occurrence: CA)
  Receive Date: 20170704
  Receipt Date: 20200731
  Transmission Date: 20201102
  Serious: Yes (Hospitalization, Other)
  Sender: FDA-Public Use
  Company Number: PHHY2017CA095439

PATIENT
  Age: 63 Year
  Sex: Female

DRUGS (8)
  1. SANDOSTATIN LAR DEPOT [Suspect]
     Active Substance: OCTREOTIDE ACETATE
  2. VITAMIN D [Suspect]
     Active Substance: VITAMIN D NOS
     Indication: PRODUCT USED FOR UNKNOWN INDICATION
     Dosage: 10000 UL, QW
     Route: 065
  3. AMLODIPINE [Concomitant]
     Active Substance: AMLODIPINE BESYLATE
     Indication: PRODUCT USED FOR UNKNOWN INDICATION
     Dosage: 10 MG, QD (DAILY IN AM)
     Route: 065
  4. SANDOSTATIN LAR DEPOT [Suspect]
     Active Substance: OCTREOTIDE ACETATE
     Dosage: 40 MG, QMO (ONCE A MONTH)
     Route: 030
  5. PANTOPRAZOLE [Concomitant]
     Active Substance: PANTOPRAZOLE
     Indication: PRODUCT USED FOR UNKNOWN INDICATION
     Dosage: 40 MG, QD (DAILY AT BREAKFAST)
     Route: 065
  6. SANDOSTATIN LAR DEPOT [Suspect]
     Active Substance: OCTREOTIDE ACETATE
     Indication: NEUROENDOCRINE TUMOUR
     Dosage: 20 MG, QMO (ONCE A MONTH)
     Route: 030
     Dates: start: 20170403
  7. OCTREOTIDE. [Suspect]
     Active Substance: OCTREOTIDE
     Indication: NEUROENDOCRINE TUMOUR
     Dosage: 100 UG, Q8H (EVERY 8 HOURS)
     Route: 058
     Dates: start: 2017, end: 2017
  8. AMLODIPINE [Suspect]
     Active Substance: AMLODIPINE BESYLATE
     Indication: BLOOD PRESSURE MEASUREMENT
     Dosage: 10 MG, QD
     Route: 048

REACTIONS (18)
  - Thyroid disorder [Unknown]
  - Haemorrhoids [Unknown]
  - Transfusion-related circulatory overload [Unknown]
  - Neuroendocrine tumour [Recovering/Resolving]
  - Clostridium difficile infection [Recovering/Resolving]
  - Diarrhoea [Unknown]
  - Erythema [Unknown]
  - Malignant neoplasm progression [Recovering/Resolving]
  - Body temperature increased [Unknown]
  - Pain in extremity [Unknown]
  - Nocturia [Unknown]
  - Rectal haemorrhage [Unknown]
  - Bronchitis [Unknown]
  - Blood pressure systolic increased [Unknown]
  - Productive cough [Unknown]
  - Stress [Unknown]
  - Feeling hot [Unknown]
  - Pulmonary mass [Recovering/Resolving]

NARRATIVE: CASE EVENT DATE: 20170613
